FAERS Safety Report 4829551-2 (Version None)
Quarter: 2005Q4

REPORT INFORMATION
  Report Type: 
  Country: None (occurrence: None)
  Receive Date: 20051116
  Receipt Date: 20051107
  Transmission Date: 20060501
  Serious: Yes (Death, Hospitalization)
  Sender: FDA-Public Use
  Company Number: FR-JNJFOC-20051101995

PATIENT
  Age: 20 Year
  Sex: Female

DRUGS (3)
  1. RISPERDAL [Suspect]
     Route: 048
  2. RISPERDAL [Suspect]
     Route: 048
  3. FUNGIZONE [Concomitant]

REACTIONS (7)
  - AGITATION [None]
  - CARDIAC ARREST [None]
  - DYSPHAGIA [None]
  - DYSPNOEA [None]
  - ORAL FUNGAL INFECTION [None]
  - SOMNOLENCE [None]
  - SWELLING FACE [None]
